FAERS Safety Report 4316402-8 (Version None)
Quarter: 2004Q1

REPORT INFORMATION
  Report Type: 
  Country: None (occurrence: None)
  Receive Date: 20040311
  Receipt Date: 20040302
  Transmission Date: 20041129
  Serious: Yes (Hospitalization, Other)
  Sender: FDA-Public Use
  Company Number: 2003118328

PATIENT
  Age: 75 Year
  Sex: Male
  Weight: 74 kg

DRUGS (1)
  1. LIPITOR [Suspect]
     Indication: ILL-DEFINED DISORDER
     Dosage: ORAL
     Route: 048
     Dates: start: 20030101

REACTIONS (3)
  - BLOOD BILIRUBIN INCREASED [None]
  - SIDEROBLASTIC ANAEMIA [None]
  - THROMBOCYTOPENIA [None]
